FAERS Safety Report 9296316 (Version 4)
Quarter: 2013Q4

REPORT INFORMATION
  Report Type: Spontaneous
  Country: US (occurrence: US)
  Receive Date: 20130517
  Receipt Date: 20131003
  Transmission Date: 20140711
  Serious: No
  Sender: FDA-Public Use
  Company Number: US-PFIZER INC-2013150947

PATIENT
  Age: 74 Year
  Sex: Male
  Weight: 90.7 kg

DRUGS (9)
  1. SUTENT [Suspect]
     Indication: RENAL CELL CARCINOMA
     Dosage: 37.5 MG, CYCLIC (DAILY 2 WKS FOLLOWED BY 1 WK OFF)
     Dates: start: 20130527
  2. CHROMIUM [Concomitant]
     Dosage: UNK
  3. LEVOTHYROXINE [Concomitant]
     Dosage: UNK
  4. LOSARTAN [Concomitant]
     Dosage: UNK
  5. METFORMIN [Concomitant]
     Dosage: UNK
  6. PRAVASTATIN [Concomitant]
     Dosage: UNK
  7. RECLAST [Concomitant]
     Indication: OSTEITIS DEFORMANS
     Dosage: UNK
     Dates: start: 20130516
  8. VITAMIN D [Concomitant]
     Dosage: UNK
  9. VITAMIN C [Concomitant]
     Dosage: UNK

REACTIONS (9)
  - Fatigue [Unknown]
  - Asthenia [Unknown]
  - Dizziness [Unknown]
  - Musculoskeletal pain [Unknown]
  - Dysgeusia [Unknown]
  - Dry mouth [Unknown]
  - Alopecia [Unknown]
  - Disease progression [Unknown]
  - Renal cell carcinoma [Unknown]
